FAERS Safety Report 19658601 (Version 1)
Quarter: 2021Q3

REPORT INFORMATION
  Report Type: Report from Study
  Country: None (occurrence: US)
  Receive Date: 20210805
  Receipt Date: 20210805
  Transmission Date: 20211014
  Serious: Yes (Other)
  Sender: FDA-Public Use
  Company Number: US-ABBVIE-21K-163-4022167-00

PATIENT
  Age: 76 Year
  Sex: Female

DRUGS (1)
  1. HUMIRA [Suspect]
     Active Substance: ADALIMUMAB
     Indication: RHEUMATOID ARTHRITIS
     Dosage: CITRATE FREE
     Route: 058
     Dates: end: 202104

REACTIONS (8)
  - Foot deformity [Unknown]
  - Post procedural complication [Unknown]
  - Ear infection [Unknown]
  - Impaired healing [Not Recovered/Not Resolved]
  - Tooth extraction [Unknown]
  - Middle ear effusion [Unknown]
  - Pain in jaw [Unknown]
  - Gingival recession [Unknown]

NARRATIVE: CASE EVENT DATE: 202106
